FAERS Safety Report 18080256 (Version 1)
Quarter: 2020Q3

REPORT INFORMATION
  Report Type: Report from Study
  Country: US (occurrence: US)
  Receive Date: 20200728
  Receipt Date: 20200728
  Transmission Date: 20201103
  Serious: Yes (Hospitalization)
  Sender: FDA-Public Use
  Company Number: US-ACTELION-A-US2020-201397

PATIENT
  Age: 50 Year
  Sex: Female
  Weight: 72.8 kg

DRUGS (21)
  1. ADCIRCA [Concomitant]
     Active Substance: TADALAFIL
     Dosage: UNK
     Dates: start: 201804
  2. DIGOXIN. [Concomitant]
     Active Substance: DIGOXIN
  3. ADCIRCA [Concomitant]
     Active Substance: TADALAFIL
     Dosage: 40 MG
     Dates: start: 201812
  4. FAMOTIDINE. [Concomitant]
     Active Substance: FAMOTIDINE
  5. ROBITUSSIN (GUAIFENESIN) [Concomitant]
     Active Substance: GUAIFENESIN
  6. POTASSIUM CHLORIDE. [Concomitant]
     Active Substance: POTASSIUM CHLORIDE
  7. UPTRAVI [Suspect]
     Active Substance: SELEXIPAG
     Indication: PULMONARY HYPERTENSION
     Dosage: 200 UNK
     Route: 048
  8. TRACLEER [Concomitant]
     Active Substance: BOSENTAN
     Dosage: UNK, HALF DOSE
     Dates: start: 201804
  9. METRONIDAZOLE. [Concomitant]
     Active Substance: METRONIDAZOLE
  10. UPTRAVI [Suspect]
     Active Substance: SELEXIPAG
     Dosage: 200 MCG, BID
     Route: 048
     Dates: start: 20191028, end: 20200118
  11. TYVASO [Concomitant]
     Active Substance: TREPROSTINIL
  12. FERROUS SULFATE. [Concomitant]
     Active Substance: FERROUS SULFATE
  13. TRACLEER [Concomitant]
     Active Substance: BOSENTAN
     Dosage: 125 MG
     Dates: start: 201805
  14. SPIRONOLACTONE. [Concomitant]
     Active Substance: SPIRONOLACTONE
  15. ENOXAPARIN [Concomitant]
     Active Substance: ENOXAPARIN
  16. SYNTHROID [Concomitant]
     Active Substance: LEVOTHYROXINE SODIUM
  17. LEVOTHYROXINE. [Concomitant]
     Active Substance: LEVOTHYROXINE
  18. TADALAFIL. [Concomitant]
     Active Substance: TADALAFIL
  19. CELLCEPT [Concomitant]
     Active Substance: MYCOPHENOLATE MOFETIL\MYCOPHENOLATE MOFETIL HYDROCHLORIDE
  20. LORATADINE. [Concomitant]
     Active Substance: LORATADINE
  21. CLARITIN ALLERGIC [Concomitant]
     Active Substance: OXYMETAZOLINE HYDROCHLORIDE

REACTIONS (25)
  - Pain [Recovered/Resolved]
  - Palpitations [Unknown]
  - Pain in jaw [Unknown]
  - Hospitalisation [Unknown]
  - Right ventricular failure [Not Recovered/Not Resolved]
  - Chest pain [Recovered/Resolved]
  - Pain in extremity [Unknown]
  - Brain natriuretic peptide increased [Unknown]
  - Pleuritic pain [Recovered/Resolved]
  - Cough [Unknown]
  - Blood creatinine increased [Unknown]
  - Peripheral swelling [Unknown]
  - Resuscitation [Unknown]
  - Fluid overload [Recovered/Resolved]
  - Dyspnoea [Recovered/Resolved]
  - Dizziness [Recovered/Resolved]
  - Pyrexia [Recovered/Resolved]
  - Abdominal distension [Recovered/Resolved]
  - Hypoxia [Unknown]
  - Hypotension [Unknown]
  - Blood urea increased [Unknown]
  - Lung opacity [Recovered/Resolved]
  - Blood potassium abnormal [Not Recovered/Not Resolved]
  - Pneumonia [Recovered/Resolved]
  - Acute kidney injury [Unknown]

NARRATIVE: CASE EVENT DATE: 20191121
